FAERS Safety Report 4915188-3 (Version None)
Quarter: 2006Q1

REPORT INFORMATION
  Report Type: 
  Country: None (occurrence: None)
  Receive Date: 20060215
  Receipt Date: 20060215
  Transmission Date: 20060701
  Serious: Yes (Other)
  Sender: FDA-Public Use
  Company Number: None

PATIENT
  Sex: Female
  Weight: 13.7 kg

DRUGS (5)
  1. CARBOPLATIN [Suspect]
     Indication: NEUROBLASTOMA
     Dosage: 960 MG
     Dates: start: 20060110, end: 20060113
  2. ETOPOSIDE [Suspect]
     Dosage: 760 MG
     Dates: start: 20060110, end: 20060113
  3. G-CSF (FILGRASTIM, AMGEN) [Suspect]
     Dosage: 1680 MG
     Dates: start: 20060117, end: 20060209
  4. MELPHALAN [Suspect]
     Dosage: 120 MG
     Dates: start: 20060110, end: 20060113
  5. IV FLUIDS [Concomitant]

REACTIONS (9)
  - ANGIOPATHY [None]
  - COLITIS [None]
  - DUODENITIS [None]
  - GASTRITIS [None]
  - GASTROINTESTINAL DISORDER [None]
  - HAEMATEMESIS [None]
  - HAEMATOCHEZIA [None]
  - OEDEMA [None]
  - OESOPHAGITIS [None]
